FAERS Safety Report 4313896-9 (Version None)
Quarter: 2004Q1

REPORT INFORMATION
  Report Type: 
  Country: None (occurrence: None)
  Receive Date: 20040305
  Receipt Date: 20040226
  Transmission Date: 20041129
  Serious: Yes (Death, Other)
  Sender: FDA-Public Use
  Company Number: 2004013261

PATIENT
  Age: 79 Year
  Sex: Male

DRUGS (6)
  1. DIFLUCAN [Suspect]
     Indication: FUNGAEMIA
     Dosage: 400 MG (DAILY), INTRAVENOUS
     Route: 042
     Dates: start: 20040114, end: 20040206
  2. MEROPENEM (MEROPENEM) [Suspect]
     Indication: ILL-DEFINED DISORDER
     Dosage: 1 GRAM (BID), INTRAVENOUS
     Route: 042
     Dates: start: 20040202, end: 20040206
  3. ALBUMIN (HUMAN) [Concomitant]
  4. LACTEC (SODIUM) LACTATE, POTASSIUM CHLORIDE, SODIUM CHLORIDE, CALCIUM [Concomitant]
  5. GABEXATE MESILATE (GABEXATE MESILATE) [Suspect]
     Dosage: 1500 MG (DAILY), INTRAVENOUS
     Route: 042
  6. AMINO ACIDS/ ELECTROLYTES /GLUCOSE/VITAMINS [Concomitant]

REACTIONS (2)
  - DISSEMINATED INTRAVASCULAR COAGULATION [None]
  - RENAL FAILURE ACUTE [None]
